FAERS Safety Report 25241208 (Version 5)
Quarter: 2025Q2

REPORT INFORMATION
  Report Type: Spontaneous
  Country: CO (occurrence: CO)
  Receive Date: 20250425
  Receipt Date: 20250522
  Transmission Date: 20250717
  Serious: No
  Sender: PFIZER
  Company Number: CO-PFIZER INC-202500087389

PATIENT
  Age: 12 Year
  Sex: Female
  Weight: 35 kg

DRUGS (1)
  1. GENOTROPIN [Suspect]
     Active Substance: SOMATROPIN
     Dosage: 1.0 MG, DAILY
     Route: 058
     Dates: start: 20250412, end: 20250412

REACTIONS (7)
  - Drug dose omission by device [Recovered/Resolved]
  - Device use error [Recovered/Resolved]
  - Wrong technique in device usage process [Recovered/Resolved]
  - Product communication issue [Recovered/Resolved]
  - Device delivery system issue [Recovered/Resolved]
  - Device mechanical issue [Recovered/Resolved]
  - Device user interface issue [Recovered/Resolved]

NARRATIVE: CASE EVENT DATE: 20250412
